FAERS Safety Report 6810282-4 (Version None)
Quarter: 2010Q2

REPORT INFORMATION
  Report Type: 
  Country: None (occurrence: None)
  Receive Date: 20100630
  Receipt Date: 20100621
  Transmission Date: 20101027
  Serious: Yes (Hospitalization)
  Sender: FDA-Public Use
  Company Number: GXKR2010HR06957

PATIENT
  Age: 36 Year
  Sex: Male

DRUGS (11)
  1. HALOPERIDOL (NGX) [Suspect]
     Indication: BIPOLAR DISORDER
     Route: 065
  2. CLOZAPINE [Suspect]
     Indication: BIPOLAR DISORDER
     Dosage: 200 MG, DAILY
     Route: 065
  3. CLOZAPINE [Suspect]
     Dosage: TITRATED TO 125 MG
     Route: 065
  4. VALPROIC ACID (NGX) [Suspect]
     Indication: BIPOLAR DISORDER
     Dosage: 1000 MG, DAILY
     Route: 065
  5. FLUPHENAZINE (NGX) [Suspect]
     Indication: BIPOLAR DISORDER
     Route: 065
  6. PERAZINE [Suspect]
     Indication: BIPOLAR DISORDER
     Route: 065
  7. PROMAZINE HYDROCHLORIDE [Suspect]
     Indication: BIPOLAR DISORDER
     Route: 065
  8. PROMAZINE HYDROCHLORIDE [Suspect]
     Dosage: 50 MG, (INTERMITTENTLY)
     Route: 065
  9. DIAZEPAM [Concomitant]
     Indication: AGITATION
     Dosage: 10 MG, UNK
     Route: 030
  10. DIAZEPAM [Concomitant]
     Dosage: 60 MG, UNK
     Route: 048
  11. LITHIUM [Concomitant]
     Dosage: 900 MG, UNK

REACTIONS (11)
  - DYSPHAGIA [None]
  - LIVER FUNCTION TEST ABNORMAL [None]
  - MUSCLE RIGIDITY [None]
  - MUTISM [None]
  - NEUROLEPTIC MALIGNANT SYNDROME [None]
  - PYREXIA [None]
  - RENAL IMPAIRMENT [None]
  - RHABDOMYOLYSIS [None]
  - SOMNOLENCE [None]
  - TACHYCARDIA [None]
  - TREMOR [None]
